FAERS Safety Report 14289415 (Version 5)
Quarter: 2018Q1

REPORT INFORMATION
  Report Type: Report from Study
  Country: US (occurrence: US)
  Receive Date: 20171214
  Receipt Date: 20180313
  Transmission Date: 20180509
  Serious: Yes (Death, Hospitalization)
  Sender: FDA-Public Use
  Company Number: US-ACTELION-A-NJ2017-154687

PATIENT
  Age: 68 Year
  Sex: Female
  Weight: 48.53 kg

DRUGS (3)
  1. ADCIRCA [Concomitant]
     Active Substance: TADALAFIL
     Dosage: UNK
  2. VELETRI [Suspect]
     Active Substance: EPOPROSTENOL
     Indication: PULMONARY HYPERTENSION
     Dosage: 43 NG/KG, PER MIN
     Route: 042
  3. OPSUMIT [Suspect]
     Active Substance: MACITENTAN
     Indication: PULMONARY HYPERTENSION
     Dosage: 10 MG, QD
     Route: 048
     Dates: start: 20150804, end: 20180124

REACTIONS (36)
  - Pulmonary arterial hypertension [Unknown]
  - Abdominal distension [Unknown]
  - Device intolerance [Unknown]
  - Abdominal discomfort [Unknown]
  - Pain in jaw [Unknown]
  - Feeling abnormal [Unknown]
  - Vomiting [Unknown]
  - Weight decreased [Unknown]
  - Decubitus ulcer [Unknown]
  - Impaired gastric emptying [Unknown]
  - Concomitant disease progression [Fatal]
  - Nausea [Unknown]
  - Condition aggravated [Unknown]
  - Memory impairment [Unknown]
  - Right ventricular failure [Fatal]
  - Hypokinesia [Unknown]
  - Dyspnoea [Recovered/Resolved]
  - Abdominal pain [Recovered/Resolved with Sequelae]
  - Asthenia [Unknown]
  - Dysphagia [Unknown]
  - Blood phosphorus decreased [Unknown]
  - Anaemia [Unknown]
  - Chronic obstructive pulmonary disease [Unknown]
  - Scleroderma [Fatal]
  - Pleural effusion [Recovered/Resolved]
  - Hypervolaemia [Unknown]
  - Decreased appetite [Unknown]
  - Gastrointestinal disorder [Fatal]
  - Hypokalaemia [Unknown]
  - Diarrhoea [Unknown]
  - Malnutrition [Unknown]
  - Hypomagnesaemia [Unknown]
  - Malaise [Unknown]
  - Gastrointestinal tube insertion [Unknown]
  - Dyspnoea exertional [Unknown]
  - Fatigue [Unknown]

NARRATIVE: CASE EVENT DATE: 201708
